FAERS Safety Report 13410014 (Version 1)
Quarter: 2017Q2

REPORT INFORMATION
  Report Type: Spontaneous
  Country: KR (occurrence: KR)
  Receive Date: 20170406
  Receipt Date: 20170406
  Transmission Date: 20170830
  Serious: Yes (Other)
  Sender: FDA-Public Use
  Company Number: KR-PFIZER INC-2017144124

PATIENT
  Age: 88 Year
  Sex: Male

DRUGS (2)
  1. PREGABALIN. [Suspect]
     Active Substance: PREGABALIN
     Indication: SPINAL CORD INJURY CERVICAL
     Dosage: 75 MG, 2X/DAY (150 MG PER DAY)
  2. PREGABALIN. [Suspect]
     Active Substance: PREGABALIN
     Indication: NEURALGIA
     Dosage: 225 MG, DAILY(150 MG AT MORNING AND 75 MG AT DINNER).

REACTIONS (1)
  - Hypercapnia [Recovered/Resolved]
